FAERS Safety Report 8586484-6 (Version None)
Quarter: 2012Q3

REPORT INFORMATION
  Report Type: 
  Country: None (occurrence: None)
  Receive Date: 20120810
  Receipt Date: 20120726
  Transmission Date: 20120928
  Serious: Yes (Other)
  Sender: FDA-Public Use
  Company Number: CA-ROCHE-731609

PATIENT

DRUGS (2)
  1. AVASTIN [Suspect]
     Indication: RETINAL DISORDER
     Route: 050
  2. RANIBIZUMAB [Suspect]
     Indication: RETINAL DISORDER
     Route: 050

REACTIONS (2)
  - MYOCARDIAL INFARCTION [None]
  - TRANSIENT ISCHAEMIC ATTACK [None]
